FAERS Safety Report 19272877 (Version 3)
Quarter: 2021Q2

REPORT INFORMATION
  Report Type: Report from Study
  Country: US (occurrence: US)
  Receive Date: 20210518
  Receipt Date: 20210604
  Transmission Date: 20210717
  Serious: Yes (Hospitalization)
  Sender: FDA-Public Use
  Company Number: US-BAUSCH-BL-2021-017390

PATIENT
  Age: 86 Year
  Sex: Female

DRUGS (8)
  1. VITAMIN D [Concomitant]
     Active Substance: VITAMIN D NOS
     Indication: PRODUCT USED FOR UNKNOWN INDICATION
  2. IRON [Concomitant]
     Active Substance: IRON
     Indication: PRODUCT USED FOR UNKNOWN INDICATION
  3. XIFAXAN [Suspect]
     Active Substance: RIFAXIMIN
     Indication: HEPATIC CIRRHOSIS
     Dosage: STARTED ON XIFAXAN APPROXIMATELY 2 YEARS AGO
     Route: 048
     Dates: start: 2019, end: 20210525
  4. LACTULOSE. [Concomitant]
     Active Substance: LACTULOSE
     Indication: PRODUCT USED FOR UNKNOWN INDICATION
  5. VITAMIN C [Concomitant]
     Active Substance: ASCORBIC ACID
     Indication: PRODUCT USED FOR UNKNOWN INDICATION
  6. LYRICA [Concomitant]
     Active Substance: PREGABALIN
     Indication: PRODUCT USED FOR UNKNOWN INDICATION
  7. TAPAZOLE [Concomitant]
     Active Substance: METHIMAZOLE
     Indication: PRODUCT USED FOR UNKNOWN INDICATION
  8. ELIQUIS [Concomitant]
     Active Substance: APIXABAN
     Indication: PRODUCT USED FOR UNKNOWN INDICATION

REACTIONS (6)
  - Therapy interrupted [Unknown]
  - Insurance issue [Unknown]
  - Renal failure [Unknown]
  - Hepatic failure [Unknown]
  - Fall [Unknown]
  - Inability to afford medication [Unknown]

NARRATIVE: CASE EVENT DATE: 20210525
